FAERS Safety Report 8904673 (Version 1)
Quarter: 2012Q4

REPORT INFORMATION
  Report Type: 
  Country: US (occurrence: US)
  Receive Date: 20121113
  Receipt Date: 20121113
  Transmission Date: 20130627
  Serious: No
  Sender: FDA-Public Use
  Company Number: US-GLAXOSMITHKLINE-A0958335A

PATIENT
  Sex: Male
  Weight: 118.2 kg

DRUGS (1)
  1. COREG [Suspect]
     Indication: PRODUCT USED FOR UNKNOWN INDICATION
     Route: 065

REACTIONS (13)
  - Hypertension [Unknown]
  - Blood pressure decreased [Unknown]
  - Gout [Unknown]
  - Dizziness [Unknown]
  - Tinnitus [Unknown]
  - Blood cholesterol increased [Unknown]
  - Nervousness [Unknown]
  - Sinus congestion [Unknown]
  - Tremor [Unknown]
  - Vertigo [Unknown]
  - Headache [Unknown]
  - Feeling abnormal [Unknown]
  - Drug dose omission [Unknown]
